FAERS Safety Report 7752003-7 (Version None)
Quarter: 2011Q3

REPORT INFORMATION
  Report Type: 
  Country: None (occurrence: None)
  Receive Date: 20110915
  Receipt Date: 20110907
  Transmission Date: 20111222
  Serious: Yes (Hospitalization)
  Sender: FDA-Public Use
  Company Number: GB-SP-2011-05192

PATIENT
  Sex: Male

DRUGS (8)
  1. IMMUCYST [Suspect]
     Indication: PRODUCT USED FOR UNKNOWN INDICATION
     Route: 065
     Dates: start: 20110601, end: 20110601
  2. PERINDOPRIL ERBUMINE [Concomitant]
  3. OMEPRAZOLE [Concomitant]
  4. SUCRALFATE [Concomitant]
  5. CARVEDILOL [Concomitant]
  6. SIMVASTATIN [Concomitant]
  7. DIGOXIN [Concomitant]
  8. ZOLADEX INFECTION [Concomitant]

REACTIONS (7)
  - CONFUSIONAL STATE [None]
  - NAUSEA [None]
  - SEPSIS [None]
  - PULMONARY OEDEMA [None]
  - PYREXIA [None]
  - ACUTE LEFT VENTRICULAR FAILURE [None]
  - CIRCULATORY COLLAPSE [None]
